FAERS Safety Report 10356870 (Version 3)
Quarter: 2014Q3

REPORT INFORMATION
  Report Type: Report from Study
  Country: IE (occurrence: IE)
  Receive Date: 20140801
  Receipt Date: 20140908
  Transmission Date: 20150326
  Serious: Yes (Hospitalization)
  Sender: FDA-Public Use
  Company Number: PHFR2014IE004752

PATIENT
  Age: 45 Year
  Sex: Female

DRUGS (1)
  1. GILENYA [Suspect]
     Active Substance: FINGOLIMOD HYDROCHLORIDE
     Indication: RELAPSING-REMITTING MULTIPLE SCLEROSIS
     Dosage: 0.5 MG, QD
     Route: 048
     Dates: start: 20140612

REACTIONS (6)
  - Depressed mood [Unknown]
  - Vertigo [Unknown]
  - Vision blurred [Recovering/Resolving]
  - Visual impairment [Unknown]
  - Balance disorder [Unknown]
  - Headache [Unknown]

NARRATIVE: CASE EVENT DATE: 20140704
